FAERS Safety Report 16608793 (Version 1)
Quarter: 2019Q3

REPORT INFORMATION
  Report Type: Spontaneous
  Country: DE (occurrence: DE)
  Receive Date: 20190722
  Receipt Date: 20190722
  Transmission Date: 20191004
  Serious: Yes (Death, Life-Threatening, Hospitalization)
  Sender: FDA-Public Use
  Company Number: DE-PFIZER INC-2019308932

PATIENT
  Age: 53 Year

DRUGS (1)
  1. SUTENT [Suspect]
     Active Substance: SUNITINIB MALATE
     Indication: CLEAR CELL RENAL CELL CARCINOMA
     Dosage: 50 MG, DAILY, CYCLIC 4:2
     Dates: start: 20181227

REACTIONS (2)
  - Neoplasm progression [Fatal]
  - Paraplegia [Unknown]

NARRATIVE: CASE EVENT DATE: 20190212
